FAERS Safety Report 8986633 (Version 2)
Quarter: 2013Q3

REPORT INFORMATION
  Report Type: Spontaneous
  Country: CA (occurrence: CA)
  Receive Date: 20121227
  Receipt Date: 20130723
  Transmission Date: 20140515
  Serious: Yes (Other)
  Sender: FDA-Public Use
  Company Number: CA-ELI_LILLY_AND_COMPANY-CA201212005681

PATIENT
  Sex: Male

DRUGS (3)
  1. CIALIS [Suspect]
     Indication: BENIGN PROSTATIC HYPERPLASIA
     Dosage: 5 MG, QD
     Dates: start: 201211
  2. CIALIS [Suspect]
     Indication: ERECTILE DYSFUNCTION
  3. LUCENTIS [Concomitant]
     Indication: MACULAR DEGENERATION
     Dosage: UNK

REACTIONS (4)
  - Choroidal neovascularisation [Unknown]
  - Eye haemorrhage [Unknown]
  - Macular degeneration [Unknown]
  - Visual acuity reduced [Unknown]
